FAERS Safety Report 6701550-5 (Version None)
Quarter: 2010Q2

REPORT INFORMATION
  Report Type: 
  Country: None (occurrence: None)
  Receive Date: 20100427
  Receipt Date: 20100412
  Transmission Date: 20101027
  Serious: Yes (Hospitalization)
  Sender: FDA-Public Use
  Company Number: 2010-1195

PATIENT
  Age: 66 Year
  Sex: Male
  Weight: 86.4 kg

DRUGS (8)
  1. APOKYN [Suspect]
     Indication: PARKINSON'S DISEASE
     Dosage: 0.2 ML, 1-3 TIIMES A DAY
     Dates: start: 20090601, end: 20090701
  2. APOKYN [Suspect]
     Indication: PARKINSON'S DISEASE
     Dosage: 0.2 ML, 1-3 TIIMES A DAY
     Dates: start: 20090901, end: 20100331
  3. EXELON [Concomitant]
  4. MIDODRINE HYDROCHLORIDE [Concomitant]
  5. KLONOPIN [Concomitant]
  6. FINASTERIDE [Concomitant]
  7. TIGAN [Concomitant]
  8. LEXAPRO [Concomitant]

REACTIONS (1)
  - MUSCULOSKELETAL DISORDER [None]
